FAERS Safety Report 7284905-2 (Version None)
Quarter: 2011Q1

REPORT INFORMATION
  Report Type: 
  Country: None (occurrence: None)
  Receive Date: 20110210
  Receipt Date: 20101217
  Transmission Date: 20110831
  Serious: Yes (Hospitalization, Other)
  Sender: FDA-Public Use
  Company Number: US-BAYER-201015087NA

PATIENT
  Sex: Female
  Weight: 103 kg

DRUGS (5)
  1. YASMIN [Suspect]
     Indication: ORAL CONTRACEPTION
     Route: 048
     Dates: start: 20050301, end: 20080101
  2. UNCODEABLE ^UNCLASSIFIABLE^ [Concomitant]
  3. YASMIN [Suspect]
     Indication: PREMENSTRUAL SYNDROME
  4. PRILOSEC [Concomitant]
     Indication: GASTROOESOPHAGEAL REFLUX DISEASE
  5. LEXAPRO [Concomitant]
     Indication: DEPRESSION
     Dosage: 20 MG (DAILY DOSE), ,

REACTIONS (7)
  - ABDOMINAL PAIN [None]
  - BILIARY COLIC [None]
  - CHOLELITHIASIS [None]
  - CHOLECYSTITIS CHRONIC [None]
  - WEIGHT INCREASED [None]
  - GASTRITIS [None]
  - CHEST PAIN [None]
